FAERS Safety Report 19000438 (Version 2)
Quarter: 2021Q2

REPORT INFORMATION
  Report Type: Spontaneous
  Country: JP (occurrence: JP)
  Receive Date: 20210312
  Receipt Date: 20210415
  Transmission Date: 20210717
  Serious: Yes (Hospitalization)
  Sender: FDA-Public Use
  Company Number: JP-TAIHO ONCOLOGY  INC-JPTT210092

PATIENT
  Age: 70 Year
  Sex: Female
  Weight: 39.6 kg

DRUGS (14)
  1. LOXOPROFEN NA [Concomitant]
     Active Substance: LOXOPROFEN SODIUM
     Dosage: STARTED MORE THAN 5 YEARS EARLIER, AT PAIN
     Route: 048
  2. PANVITAN [Concomitant]
     Active Substance: VITAMINS
     Route: 048
     Dates: start: 20200301
  3. LANSOPRAZOLE OD [Concomitant]
     Active Substance: LANSOPRAZOLE
     Dosage: STARTED MORE THAN 5 YEARS EARLIER
     Route: 048
  4. ONEALFA [Concomitant]
     Active Substance: ALFACALCIDOL
     Dosage: STARTED MORE THAN 5 YEARS EARLIER
     Route: 048
  5. SUMATRIPTAN. [Concomitant]
     Active Substance: SUMATRIPTAN
     Dosage: STARTED MORE THAN 5 YEARS EARLIER, AT HEADACHE
     Route: 048
  6. METHYCOBAL [Concomitant]
     Active Substance: METHYLCOBALAMIN
     Dosage: STARTED MORE THAN 5 YEARS EARLIER
     Route: 048
     Dates: end: 20210204
  7. TOARASET [Concomitant]
     Active Substance: ACETAMINOPHEN\TRAMADOL HYDROCHLORIDE
     Route: 048
     Dates: start: 20200407
  8. MAGMITT [Concomitant]
     Active Substance: MAGNESIUM OXIDE
     Dosage: STARTED MORE THAN 5 YEARS EARLIER
     Route: 048
     Dates: end: 20210204
  9. HIRUDOID [Concomitant]
     Active Substance: GLYCOSAMINOGLYCANS
     Dosage: DOSE NOT REPORTED, ENTIRE BODY
     Route: 061
     Dates: start: 20200110
  10. FERROUS CITRATE NA [Concomitant]
     Active Substance: SODIUM FERROUS CITRATE
     Route: 048
     Dates: start: 20200609
  11. LONSURF [Suspect]
     Active Substance: TIPIRACIL HYDROCHLORIDE\TRIFLURIDINE
     Indication: COLON CANCER
     Dosage: DETAILS NOT REPORTED
     Route: 048
     Dates: start: 20200609, end: 20210126
  12. LOPERAMIDE HYDROCHLORIDE. [Concomitant]
     Active Substance: LOPERAMIDE HYDROCHLORIDE
     Dosage: AT DIARRHEA
     Route: 048
     Dates: start: 20201218
  13. LYRICA [Concomitant]
     Active Substance: PREGABALIN
     Route: 048
  14. AVASTIN [Suspect]
     Active Substance: BEVACIZUMAB
     Indication: COLON CANCER
     Dosage: 170 MG/DAY, DETAILS NOT REPORTED
     Route: 041
     Dates: start: 20200609, end: 20210105

REACTIONS (1)
  - Cardiac failure [Recovering/Resolving]

NARRATIVE: CASE EVENT DATE: 20210126
